FAERS Safety Report 10872418 (Version 3)
Quarter: 2015Q3

REPORT INFORMATION
  Report Type: Spontaneous
  Country: US (occurrence: US)
  Receive Date: 20150226
  Receipt Date: 20150807
  Transmission Date: 20151125
  Serious: Yes (Death, Hospitalization, Other)
  Sender: FDA-Public Use
  Company Number: US-MERCK-1409USA010704

PATIENT
  Sex: Male
  Weight: 83.9 kg

DRUGS (1)
  1. JANUVIA [Suspect]
     Active Substance: SITAGLIPTIN PHOSPHATE
     Indication: TYPE 2 DIABETES MELLITUS
     Dosage: 50 MG, QD
     Route: 048
     Dates: start: 20081211, end: 20090403

REACTIONS (18)
  - Nasal congestion [Unknown]
  - Abdominal cavity drainage [Unknown]
  - Pancreatitis [Unknown]
  - Stent placement [Unknown]
  - Biliary dilatation [Unknown]
  - Hypercholesterolaemia [Unknown]
  - Bile duct stenosis [Unknown]
  - Drug intolerance [Unknown]
  - Abdominal distension [Unknown]
  - Pancreatic carcinoma metastatic [Fatal]
  - Cough [Unknown]
  - Insomnia [Unknown]
  - Pain [Unknown]
  - Constipation [Unknown]
  - Surgery [Unknown]
  - Appetite disorder [Unknown]
  - Hypertension [Unknown]
  - Nicotine dependence [Unknown]

NARRATIVE: CASE EVENT DATE: 2010
